FAERS Safety Report 23595603 (Version 3)
Quarter: 2024Q3

REPORT INFORMATION
  Report Type: Spontaneous
  Country: JP (occurrence: JP)
  Receive Date: 20240305
  Receipt Date: 20240702
  Transmission Date: 20241017
  Serious: Yes (Hospitalization, Other)
  Sender: TAKEDA
  Company Number: JP-OTSUKA-2024_004974

PATIENT
  Age: 8 Decade
  Sex: Female

DRUGS (1)
  1. ICLUSIG [Suspect]
     Active Substance: PONATINIB\PONATINIB HYDROCHLORIDE
     Indication: Chronic myeloid leukaemia
     Dosage: 45 MILLIGRAM, QD
     Route: 048
     Dates: start: 202401

REACTIONS (3)
  - Interstitial lung disease [Recovering/Resolving]
  - COVID-19 [Recovered/Resolved with Sequelae]
  - Otitis media [Recovering/Resolving]

NARRATIVE: CASE EVENT DATE: 20240101
